FAERS Safety Report 21517707 (Version 1)
Quarter: 2022Q4

REPORT INFORMATION
  Report Type: Spontaneous
  Country: US (occurrence: US)
  Receive Date: 20221028
  Receipt Date: 20221028
  Transmission Date: 20230112
  Serious: No
  Sender: FDA-Public Use
  Company Number: US-GSK-US2022150379

PATIENT
  Age: 62 Year
  Sex: Male

DRUGS (1)
  1. LAMICTAL [Suspect]
     Active Substance: LAMOTRIGINE
     Indication: Seizure
     Dosage: 100 MG, BID,2 TABLET BY MOUTH TWICE DAILY
     Route: 048

REACTIONS (7)
  - Migraine [Not Recovered/Not Resolved]
  - Tremor [Unknown]
  - Fall [Unknown]
  - Intentional underdose [Unknown]
  - Intentional product misuse [Unknown]
  - Product dose omission issue [Unknown]
  - Inappropriate schedule of product administration [Unknown]

NARRATIVE: CASE EVENT DATE: 20221018
